FAERS Safety Report 5766161-7 (Version None)
Quarter: 2008Q2

REPORT INFORMATION
  Report Type: 
  Country: None (occurrence: None)
  Receive Date: 20080605
  Receipt Date: 20080519
  Transmission Date: 20081010
  Serious: Yes (Hospitalization, Other)
  Sender: FDA-Public Use
  Company Number: 2008S1008615

PATIENT
  Age: 57 Year
  Sex: Female

DRUGS (3)
  1. BENDROFLUMETHIAZIDE (BENDROFLUMETHIAZIDE) DOSE, FORM, ROUTE AND FREQUE [Suspect]
     Indication: ESSENTIAL HYPERTENSION
     Dosage: 5 MG; DAILY
  2. RENINE [Concomitant]
  3. ATENOLOL [Suspect]
     Indication: ESSENTIAL HYPERTENSION
     Dosage: 50 MG;DAILY

REACTIONS (11)
  - ARCUS LIPOIDES [None]
  - BLOOD PARATHYROID HORMONE DECREASED [None]
  - CONJUNCTIVAL HYPERAEMIA [None]
  - CORNEAL DEPOSITS [None]
  - DYSPEPSIA [None]
  - FOREIGN BODY SENSATION IN EYES [None]
  - LETHARGY [None]
  - MILK-ALKALI SYNDROME [None]
  - NOCTURIA [None]
  - OEDEMA PERIPHERAL [None]
  - POLYURIA [None]
